FAERS Safety Report 9222128 (Version 1)
Quarter: 2013Q2

REPORT INFORMATION
  Report Type: Spontaneous
  Country: US (occurrence: None)
  Receive Date: 20130408
  Receipt Date: 20130408
  Transmission Date: 20140414
  Serious: Yes (Hospitalization, Other)
  Sender: FDA-Public Use
  Company Number: 2012-003993

PATIENT
  Age: 67 Year
  Sex: Female
  Weight: 61.2 kg

DRUGS (20)
  1. ACTONEL (RISEDRONATE SODIUM) TABLET, 35MG [Suspect]
     Route: 048
     Dates: start: 20040421, end: 200504
  2. FOSAMAX (ALENDRONATE SODIUM) [Suspect]
     Route: 048
     Dates: start: 20050403, end: 20060412
  3. FOSAMAX (ALENDRONATE SODIUM) [Suspect]
     Route: 048
     Dates: start: 20050403, end: 20060412
  4. FOSAMAX (ALENDRONATE SODIUM) [Suspect]
     Route: 048
     Dates: start: 20050403, end: 20060412
  5. BONIVA (IBANDRONATE SODIUM) [Suspect]
     Route: 048
     Dates: start: 20060412, end: 201105
  6. BONIVA (IBANDRONATE SODIUM) [Suspect]
     Route: 048
     Dates: start: 20060412, end: 201105
  7. BONIVA (IBANDRONATE SODIUM) [Suspect]
     Route: 048
     Dates: start: 20060412, end: 201105
  8. SIMVASTATIN (SIMVASTATIN) [Concomitant]
  9. PRILOSEC [Concomitant]
  10. ALBUTEROL (SALBUTAMOL) [Concomitant]
  11. ADVAIR (FLUTICASONE PROPIONATE, SALMETEROL XINAFOATE) [Concomitant]
  12. FLONASE (FLUTICASONE PROPIONATE) [Concomitant]
  13. IBUPROFEN (IBUPROFEN) [Concomitant]
  14. FISH OIL (FISH OIL) [Concomitant]
  15. MULTIVITAMIN (VITAMINS NOS) [Concomitant]
  16. CITRACAL PETITES (CALCIUM CITRATE, COLECALCIFEROL) [Concomitant]
  17. VITAMIN D (COLECALCIFEROL) [Concomitant]
  18. B 12 (CYANOCOBALAMIN) [Concomitant]
  19. MAGNESIUM (MAGNESIUM) [Concomitant]
  20. ALL OTHER THERAPEUTIC PRODUCTS [Concomitant]

REACTIONS (8)
  - Atypical femur fracture [None]
  - Stress fracture [None]
  - Pain in extremity [None]
  - Osteogenesis imperfecta [None]
  - Low turnover osteopathy [None]
  - Pain [None]
  - Gastrooesophageal reflux disease [None]
  - Back pain [None]
